FAERS Safety Report 11813480 (Version 4)
Quarter: 2016Q1

REPORT INFORMATION
  Report Type: Report from Study
  Country: JP (occurrence: JP)
  Receive Date: 20151209
  Receipt Date: 20160202
  Transmission Date: 20160525
  Serious: Yes (Death, Life-Threatening, Hospitalization, Disabling, Other)
  Sender: FDA-Public Use
  Company Number: JP-009507513-1512JPN002717

PATIENT
  Age: 57 Year
  Sex: Female
  Weight: 39.9 kg

DRUGS (53)
  1. TEMOZOLOMIDE. [Suspect]
     Active Substance: TEMOZOLOMIDE
     Indication: GLIOBLASTOMA MULTIFORME
     Dosage: 75 MG/M2, QD
     Route: 041
     Dates: start: 20130707, end: 20130817
  2. SOLU-CORTEF [Suspect]
     Active Substance: HYDROCORTISONE SODIUM SUCCINATE
     Dosage: DAILY DOSAGE UNKNOWN
     Route: 041
     Dates: start: 20130711, end: 20140110
  3. NOVO HEPARIN [Concomitant]
     Active Substance: HEPARIN SODIUM
     Dosage: DAILY DOSE UNKNOWN, ROUTE: IV UNSPECIFIED
     Dates: start: 20130605, end: 20130605
  4. OYPALOMIN [Concomitant]
     Active Substance: IOPAMIDOL
     Dosage: DAILY DOSAGE UNKNOWN, ROUTE: IV UNSPECIFIED
     Dates: start: 20130605, end: 20130605
  5. VOLTAREN [Concomitant]
     Active Substance: DICLOFENAC SODIUM
     Dosage: DAILY DOSAGE UNKNOWN,
     Route: 054
     Dates: start: 20130606
  6. RASENAZOLIN [Concomitant]
     Active Substance: CEFAZOLIN SODIUM
     Dosage: DAILY DOSAGE UNKNOWN
     Route: 041
     Dates: start: 20130606, end: 20130703
  7. NU-LOTAN [Concomitant]
     Active Substance: LOSARTAN POTASSIUM
     Dosage: DAILY DOSAGE UNKNOWN
     Route: 048
     Dates: start: 20130614, end: 20130617
  8. SEVOFRANE [Concomitant]
     Active Substance: SEVOFLURANE
     Dosage: DAILY DOSAGE UNKNOWN, FORMULATION: INH, ROUTE: INHALATION
     Route: 055
     Dates: start: 20130606, end: 20131203
  9. SURGICEL [Concomitant]
     Active Substance: CELLULOSE, OXIDIZED
     Dosage: DAILY DOSAGE UNKNOWN, FORMULATION: EXT, ROUTE: OTHER
     Dates: start: 20130606, end: 20130618
  10. TEMOZOLOMIDE. [Suspect]
     Active Substance: TEMOZOLOMIDE
     Dosage: 200 MG/M2, QD
     Route: 041
     Dates: start: 20131013, end: 20131017
  11. BRIDION [Concomitant]
     Active Substance: SUGAMMADEX
     Dosage: DAILY DOSAGE UNKNOWN, ROUTE: IV UNSPECIFIED
     Dates: start: 20130606, end: 20131203
  12. ULTIVA [Concomitant]
     Active Substance: REMIFENTANIL HYDROCHLORIDE
     Dosage: DAILY DOSAGE UNKNOWN, ROUTE: IV UNSPECIFIED
     Dates: start: 20130606, end: 20131203
  13. TEMOZOLOMIDE. [Suspect]
     Active Substance: TEMOZOLOMIDE
     Dosage: 200 MG/M2, QD
     Route: 041
     Dates: start: 20140106, end: 20140110
  14. MENILET (ISOSORBIDE) [Concomitant]
     Dosage: DAILY DOSE UNKNOWN, FORMULATION: JEL
     Route: 048
     Dates: start: 20130531, end: 20130616
  15. PROPOFOL. [Concomitant]
     Active Substance: PROPOFOL
     Dosage: DAILY DOSAGE UNKNOWN, ROUTE: IV UNSPECIFIED
     Dates: start: 20130606, end: 20131203
  16. ADONA [Concomitant]
     Active Substance: CARBAZOCHROME SODIUM SULFONATE
     Dosage: DAILY DOSAGE UNKNOWN, ROUTE: IV UNSPECIFIED
     Dates: start: 20130606, end: 20130618
  17. CEFAZOLIN SODIUM. [Concomitant]
     Active Substance: CEFAZOLIN SODIUM
     Dosage: DAILY DOSAGE UNKNOWN
     Route: 041
     Dates: start: 20130606, end: 20130703
  18. ALEVIATIN [Concomitant]
     Active Substance: PHENYTOIN SODIUM
     Indication: EPILEPSY
     Dosage: DAILY DOSAGE UNKNOWN
     Route: 041
     Dates: start: 20130606, end: 20130703
  19. TEMOZOLOMIDE. [Suspect]
     Active Substance: TEMOZOLOMIDE
     Dosage: 200 MG/M2, QD
     Route: 041
     Dates: start: 20131110, end: 20131114
  20. PREMINENT [Concomitant]
     Active Substance: HYDROCHLOROTHIAZIDE\LOSARTAN POTASSIUM
     Dosage: DAILY DOSAGE UNKNOWN
     Route: 048
     Dates: start: 20130527, end: 20130613
  21. LOXOPROFEN SODIUM [Concomitant]
     Active Substance: LOXOPROFEN SODIUM
     Dosage: DAILY DOSAGE UNKNOWN
     Route: 048
     Dates: start: 20130528, end: 201306
  22. ANAPEINE [Concomitant]
     Active Substance: ROPIVACAINE HYDROCHLORIDE
     Dosage: DAILY DOSAGE UNKNOWN, ROUTE: IV UNSPECIFIED
     Dates: start: 20130606, end: 20131203
  23. FENTANYL CITRATE. [Concomitant]
     Active Substance: FENTANYL CITRATE
     Dosage: DAILY DOSAGE UNKNOWN, ROUTE: IV UNSPECIFIED
     Dates: start: 20130606, end: 20131203
  24. NICARPINE [Concomitant]
     Active Substance: NICARDIPINE
     Dosage: DAILY DOSAGE UNKNOWN, ROUTE: IV UNSPECIFIED
     Dates: start: 20130606, end: 20131203
  25. BENAMBAX [Suspect]
     Active Substance: PENTAMIDINE
     Indication: ANTIFUNGAL PROPHYLAXIS
     Dosage: DAILY DOSAGE UNKNOWN
     Route: 051
     Dates: start: 20130710, end: 20140106
  26. TANATRIL [Concomitant]
     Active Substance: IMIDAPRIL
     Dosage: DAILY DOSAGE UNKNOWN
     Route: 048
     Dates: start: 20130527, end: 20130913
  27. ASCORBIC ACID. [Concomitant]
     Active Substance: ASCORBIC ACID
     Dosage: DAILY DOSAGE UNKNOWN
     Route: 041
     Dates: start: 20130529, end: 20130617
  28. MAGNEVIST [Concomitant]
     Active Substance: GADOPENTETATE DIMEGLUMINE
     Dosage: DAILY DOSAGE UNKNOWN, ROUTE: IV UNSPECIFIED
     Dates: start: 20130531, end: 20130808
  29. ESLAX [Concomitant]
     Active Substance: ROCURONIUM BROMIDE
     Dosage: DAILY DOSAGE UNKNOWN, ROUTE: IV UNSPECIFIED, CONCENTRATION: 50MG/5.0ML
     Dates: start: 20130606, end: 20131203
  30. TRANSAMIN [Concomitant]
     Active Substance: TRANEXAMIC ACID
     Dosage: DAILY DOSAGE UNKNOWN, ROUTE: IV UNSPECIFIED
     Dates: start: 20130606, end: 20130618
  31. TEMOZOLOMIDE. [Suspect]
     Active Substance: TEMOZOLOMIDE
     Dosage: 150 MG/M2, QD
     Route: 041
     Dates: start: 20130915, end: 20150919
  32. HICORT [Suspect]
     Active Substance: BETAMETHASONE SODIUM PHOSPHATE
     Dosage: DAILY DOSAGE UNKNOWN, ROUTE: IV UNSPECIFIED
     Route: 042
     Dates: start: 20130606, end: 20130703
  33. BETAMETHASONE. [Suspect]
     Active Substance: BETAMETHASONE
     Dosage: DAILY DOSE UNKNOWN
     Route: 048
     Dates: start: 20130608, end: 20140129
  34. BFLUID [Concomitant]
     Active Substance: AMINO ACIDS\DEXTROSE\ELECTROLYTES NOS\VITAMINS
     Dosage: DAILY DOSAGE UNKNOWN
     Route: 041
     Dates: start: 20130529, end: 20130617
  35. SALINHES [Concomitant]
     Active Substance: HETASTARCH
     Dosage: DAILY DOSAGE UNKNOWN
     Route: 041
     Dates: start: 20130605, end: 20130605
  36. FAMOTIDINE. [Concomitant]
     Active Substance: FAMOTIDINE
     Dosage: DAILY DOSAGE UNKNOWN, ROUTE: IV UNSPECIFIED
     Dates: start: 20130606, end: 20130618
  37. BERIPLAST P [Concomitant]
     Dosage: UNK
     Route: 050
     Dates: start: 20130618, end: 20130618
  38. TEMOZOLOMIDE. [Suspect]
     Active Substance: TEMOZOLOMIDE
     Dosage: 200 MG/M2, QD
     Route: 041
     Dates: start: 20131209, end: 20131213
  39. TEMODAL [Suspect]
     Active Substance: TEMOZOLOMIDE
     Indication: GLIOBLASTOMA MULTIFORME
     Dosage: DAILY DOSAGE UNKNOWN
     Route: 048
     Dates: start: 20130616, end: 20130616
  40. EXCEGRAN [Suspect]
     Active Substance: ZONISAMIDE
     Indication: EPILEPSY
     Dosage: DAILY DOSE UNKNOWN
     Route: 048
     Dates: start: 20130621, end: 20130709
  41. CEFTRIAXONE SODIUM. [Suspect]
     Active Substance: CEFTRIAXONE SODIUM
     Indication: PNEUMONIA ASPIRATION
     Dosage: DAILY DOSAGE UNKNOWN
     Route: 041
     Dates: start: 20130624, end: 20130708
  42. PRIMPERAN [Concomitant]
     Active Substance: METOCLOPRAMIDE HYDROCHLORIDE
     Dosage: DAILY DOSAGE UNKNOWN, ROUTE: IV UMSPECIFIED
     Dates: start: 20130527, end: 20130703
  43. GLYPOSE [Concomitant]
     Active Substance: FRUCTOSE\GLYCERIN
     Dosage: DAILY DOSAGE UNKNOWN
     Route: 041
     Dates: start: 20130527, end: 20130703
  44. GLUACETO [Concomitant]
     Active Substance: CALCIUM GLUCONATE\DEXTROSE\MAGNESIUM CHLORIDE\POTASSIUM CHLORIDE\POTASSIUM PHOSPHATE, MONOBASIC\SODIUM ACETATE\SODIUM CHLORIDE
     Dosage: DAILY DOSAGE UNKNOWN
     Route: 041
     Dates: start: 20130529, end: 20130617
  45. PANTOL [Concomitant]
     Active Substance: DEXPANTHENOL
     Dosage: DAILY DOSAGE UNKNOWN
     Route: 041
     Dates: start: 20130529, end: 20130617
  46. VITAMEDIN INTRAVENOUS [Concomitant]
     Active Substance: CYANOCOBALAMIN\PYRIDOXINE HYDROCHLORIDE\THIAMINE
     Dosage: DAILY DOSAGE UNKNOWN
     Route: 041
     Dates: start: 20130529, end: 20130628
  47. SENNOSIDES. [Concomitant]
     Active Substance: SENNOSIDES
     Dosage: DAILY DOSAGE UNKNOWN, FORMULATION: POR
     Route: 048
     Dates: start: 20130530
  48. BAKTAR [Suspect]
     Active Substance: SULFAMETHOXAZOLE\TRIMETHOPRIM
     Indication: ANTIFUNGAL PROPHYLAXIS
     Dosage: DAILY DOSAGE UNKNOWN
     Route: 048
     Dates: start: 20130705, end: 20130709
  49. GRANISETRON HYDROCHLORIDE. [Suspect]
     Active Substance: GRANISETRON HYDROCHLORIDE
     Indication: PROPHYLAXIS
     Dosage: DAILY DOSAGE UNKNOWN
     Route: 041
     Dates: start: 20130707, end: 20140110
  50. TAKEPRON [Concomitant]
     Active Substance: LANSOPRAZOLE
     Dosage: DAILY DOSAGE UNKNOWN
     Route: 048
     Dates: start: 20130527, end: 20140129
  51. EPHEDRINE HYDROCHLORIDE [Concomitant]
     Active Substance: EPHEDRINE HYDROCHLORIDE
     Dosage: DAILY DOSAGE UNKNOWN, ROUTE: IV UNSPECIFIED
     Dates: start: 20130606, end: 20131203
  52. NEOSYNESIN [Concomitant]
     Active Substance: PHENYLEPHRINE HYDROCHLORIDE
     Dosage: DAILY DOSAGE UNKNOWN, ROUTE: IV UNSPECIFIED
     Dates: start: 20130606, end: 20131203
  53. MANNITOL. [Concomitant]
     Active Substance: MANNITOL
     Dosage: DAILY DOSAGE UNKNOWN
     Route: 041
     Dates: start: 20130606

REACTIONS (41)
  - Altered state of consciousness [Not Recovered/Not Resolved]
  - Alopecia [Not Recovered/Not Resolved]
  - Hydrocephalus [Recovered/Resolved with Sequelae]
  - Pneumonia aspiration [Recovered/Resolved]
  - Urinary tract infection [Recovered/Resolved]
  - Respiratory failure [Fatal]
  - Epilepsy [Recovering/Resolving]
  - Impaired healing [Recovered/Resolved]
  - Neutrophil count increased [Recovered/Resolved]
  - Chronic sinusitis [Recovering/Resolving]
  - External hydrocephalus [Not Recovered/Not Resolved]
  - Pneumonia aspiration [Recovered/Resolved]
  - Urinary tract infection [Recovered/Resolved]
  - Normal pressure hydrocephalus [Recovering/Resolving]
  - Hypopituitarism [Recovering/Resolving]
  - Subdural hygroma [Not Recovered/Not Resolved]
  - Hypertension [Recovered/Resolved]
  - White blood cell count increased [Recovered/Resolved]
  - White blood cell count increased [Recovered/Resolved]
  - Oxygen saturation decreased [Recovered/Resolved]
  - Hypokalaemia [Recovered/Resolved]
  - Epilepsy [Recovered/Resolved]
  - Hyponatraemia [Recovered/Resolved]
  - Vomiting [Recovered/Resolved]
  - Hypothermia [Recovered/Resolved]
  - Neutrophil count increased [Recovered/Resolved]
  - Hypokalaemia [Recovered/Resolved]
  - Brain neoplasm [Fatal]
  - Injection site eczema [Recovered/Resolved]
  - White blood cell count increased [Recovered/Resolved]
  - Disease progression [Fatal]
  - Bradycardia [Recovered/Resolved]
  - Drug eruption [Recovered/Resolved]
  - Lymphocyte count decreased [Recovered/Resolved]
  - Altered state of consciousness [Not Recovered/Not Resolved]
  - Cerebral haemorrhage [Recovered/Resolved]
  - Hypoglycaemia [Recovered/Resolved]
  - Hydrocephalus [Recovering/Resolving]
  - Extradural haematoma [Recovered/Resolved]
  - Neutrophil count increased [Recovered/Resolved]
  - Haematuria [Recovering/Resolving]

NARRATIVE: CASE EVENT DATE: 20130617
